FAERS Safety Report 9322706 (Version 2)
Quarter: 2013Q4

REPORT INFORMATION
  Report Type: Spontaneous
  Country: US (occurrence: US)
  Receive Date: 20130601
  Receipt Date: 20131004
  Transmission Date: 20140711
  Serious: Yes (Hospitalization, Disabling, Other)
  Sender: FDA-Public Use
  Company Number: US-ASTRAZENECA-2013SE38661

PATIENT
  Age: 49 Year
  Sex: Female

DRUGS (20)
  1. NEXIUM [Suspect]
     Indication: GASTROOESOPHAGEAL REFLUX DISEASE
     Dosage: 1 TIME DAILY
     Route: 048
     Dates: start: 1999, end: 2013
  2. NEXIUM [Suspect]
     Indication: ABDOMINAL DISCOMFORT
     Dosage: 1 TIME DAILY
     Route: 048
     Dates: start: 1999, end: 2013
  3. PRILOSEC [Suspect]
     Dosage: 1 TIME DAILY
     Route: 048
     Dates: start: 1999, end: 2013
  4. PREVACID [Suspect]
     Indication: ABDOMINAL DISCOMFORT
     Route: 065
     Dates: start: 1999, end: 2013
  5. PREVACID [Suspect]
     Indication: GASTROOESOPHAGEAL REFLUX DISEASE
     Route: 065
     Dates: start: 1999, end: 2013
  6. PREVACID [Suspect]
     Indication: HYPERCHLORHYDRIA
     Route: 065
     Dates: start: 1999, end: 2013
  7. LASIX [Concomitant]
     Indication: FLUID RETENTION
  8. TRICOR [Concomitant]
     Indication: BLOOD CHOLESTEROL ABNORMAL
  9. DIAVON [Concomitant]
     Indication: BLOOD PRESSURE ABNORMAL
  10. CARISOPRODOL [Concomitant]
     Indication: SLEEP DISORDER
     Dosage: 1 MG
  11. CARISOPRODOL [Concomitant]
     Indication: PAIN
     Dosage: 1 MG
  12. CARISOPRODOL [Concomitant]
     Indication: MUSCLE SPASMS
     Dosage: 1 MG
  13. CLONAZEPAM [Concomitant]
     Indication: SLEEP DISORDER
  14. CLONAZEPAM [Concomitant]
     Indication: PAIN
  15. LORAZEPAM [Concomitant]
     Indication: PANIC ATTACK
     Dates: start: 2003
  16. LORAZEPAM [Concomitant]
     Indication: NERVOUS SYSTEM DISORDER
     Dates: start: 2003
  17. ASPIRIN [Concomitant]
     Indication: THROMBOSIS
  18. ALLERGIES RELIEF [Concomitant]
     Indication: ALLERGY TO ARTHROPOD STING
  19. COLON HEALTH [Concomitant]
     Indication: GASTROINTESTINAL DISORDER
  20. COLON HEALTH [Concomitant]
     Indication: CONSTIPATION

REACTIONS (18)
  - Bone disorder [Unknown]
  - Arthropathy [Unknown]
  - Back disorder [Unknown]
  - Spinal disorder [Unknown]
  - Pneumonia [Unknown]
  - Osteoporosis [Unknown]
  - Bone density decreased [Unknown]
  - Systemic lupus erythematosus [Unknown]
  - Multiple fractures [Unknown]
  - Rib fracture [Unknown]
  - Osteoarthritis [Unknown]
  - Carpal tunnel syndrome [Unknown]
  - Cataract [Unknown]
  - Chronic obstructive pulmonary disease [Unknown]
  - Diabetes mellitus [Unknown]
  - Glaucoma [Unknown]
  - Fall [Unknown]
  - Depression [Unknown]
